FAERS Safety Report 14232214 (Version 1)
Quarter: 2017Q4

REPORT INFORMATION
  Report Type: Spontaneous
  Country: US (occurrence: US)
  Receive Date: 20171128
  Receipt Date: 20171128
  Transmission Date: 20180321
  Serious: No
  Sender: FDA-Public Use
  Company Number: US-MYLANLABS-2017M1073806

PATIENT
  Age: 75 Year
  Sex: Female
  Weight: 58 kg

DRUGS (6)
  1. SOTALOL. [Concomitant]
     Active Substance: SOTALOL
     Indication: PRODUCT USED FOR UNKNOWN INDICATION
     Dosage: 120 MG, BID
  2. DOXAZOSIN [Concomitant]
     Active Substance: DOXAZOSIN\DOXAZOSIN MESYLATE
     Indication: BLOOD PRESSURE DECREASED
     Dosage: 2 MG, BID
  3. LOSARTAN. [Concomitant]
     Active Substance: LOSARTAN
     Indication: BLOOD PRESSURE DECREASED
     Dosage: 50 MG, BID
  4. LEVOTHYROXINE. [Concomitant]
     Active Substance: LEVOTHYROXINE
     Indication: THYROID DISORDER
     Dosage: 7.5 MG FIVE DAYS A WEEK
  5. PROCTOFOAM HC [Suspect]
     Active Substance: HYDROCORTISONE ACETATE\PRAMOXINE HYDROCHLORIDE
     Indication: HAEMORRHOIDS
     Dosage: 1 DF, TID (1 APPLICATION, AEROSOL FOAM).
     Route: 061
     Dates: start: 20171115, end: 20171115
  6. PLAVIX [Concomitant]
     Active Substance: CLOPIDOGREL BISULFATE
     Indication: PRODUCT USED FOR UNKNOWN INDICATION
     Dosage: 75 MG, QD

REACTIONS (9)
  - Cardiac discomfort [Unknown]
  - Nightmare [Recovered/Resolved]
  - Hallucination [Unknown]
  - Illusion [Recovered/Resolved]
  - Paraesthesia [Recovering/Resolving]
  - Heart rate decreased [Recovered/Resolved]
  - Panic reaction [Unknown]
  - Sleep disorder [Recovered/Resolved]
  - Heart rate increased [Recovered/Resolved]

NARRATIVE: CASE EVENT DATE: 20171116
